FAERS Safety Report 14310980 (Version 1)
Quarter: 2017Q4

REPORT INFORMATION
  Report Type: Spontaneous
  Country: US (occurrence: US)
  Receive Date: 20171221
  Receipt Date: 20171221
  Transmission Date: 20180321
  Serious: No
  Sender: FDA-Public Use
  Company Number: US-SA-2016SA218404

PATIENT
  Sex: Female

DRUGS (1)
  1. PLAVIX [Suspect]
     Active Substance: CLOPIDOGREL BISULFATE
     Route: 065

REACTIONS (7)
  - Feeling abnormal [Unknown]
  - Nervousness [Unknown]
  - Flushing [Unknown]
  - Unevaluable event [Unknown]
  - Heart rate increased [Unknown]
  - Blood pressure increased [Unknown]
  - Erythema [Unknown]
